FAERS Safety Report 24138108 (Version 4)
Quarter: 2025Q2

REPORT INFORMATION
  Report Type: Spontaneous
  Country: US (occurrence: US)
  Receive Date: 20240725
  Receipt Date: 20250420
  Transmission Date: 20250716
  Serious: Yes (Other)
  Sender: SANOFI AVENTIS
  Company Number: US-SA-SAC20240722000129

PATIENT
  Age: 82 Year
  Sex: Male
  Weight: 79.38 kg

DRUGS (85)
  1. DUPIXENT [Suspect]
     Active Substance: DUPILUMAB
     Indication: Asthma
     Dosage: 300 MG, QOW
     Route: 058
  2. TYLENOL [Concomitant]
     Active Substance: ACETAMINOPHEN
  3. AMLODIPINE BESYLATE [Concomitant]
     Active Substance: AMLODIPINE BESYLATE
  4. VITAMIN D3 [Concomitant]
     Active Substance: CHOLECALCIFEROL
     Dosage: UNK, QD
  5. RABEPRAZOLE SODIUM [Concomitant]
     Active Substance: RABEPRAZOLE SODIUM
  6. ALBUTEROL SULFATE [Concomitant]
     Active Substance: ALBUTEROL SULFATE
  7. LEXAPRO [Concomitant]
     Active Substance: ESCITALOPRAM OXALATE
  8. LEXAPRO [Concomitant]
     Active Substance: ESCITALOPRAM OXALATE
  9. LEXAPRO [Concomitant]
     Active Substance: ESCITALOPRAM OXALATE
  10. HYDROCHLOROTHIAZIDE [Concomitant]
     Active Substance: HYDROCHLOROTHIAZIDE
  11. CRESTOR [Concomitant]
     Active Substance: ROSUVASTATIN CALCIUM
  12. DALIRESP [Concomitant]
     Active Substance: ROFLUMILAST
  13. FLOVENT [Concomitant]
     Active Substance: FLUTICASONE PROPIONATE
  14. FLOVENT [Concomitant]
     Active Substance: FLUTICASONE PROPIONATE
  15. FLOVENT [Concomitant]
     Active Substance: FLUTICASONE PROPIONATE
  16. SODIUM CHLORIDE [Concomitant]
     Active Substance: SODIUM CHLORIDE
  17. SODIUM CHLORIDE [Concomitant]
     Active Substance: SODIUM CHLORIDE
  18. SODIUM CHLORIDE [Concomitant]
     Active Substance: SODIUM CHLORIDE
  19. LOPRESSOR [Concomitant]
     Active Substance: METOPROLOL TARTRATE
  20. LOPRESSOR [Concomitant]
     Active Substance: METOPROLOL TARTRATE
  21. LOPRESSOR [Concomitant]
     Active Substance: METOPROLOL TARTRATE
  22. TRIAMCINOLONE ACETONIDE [Concomitant]
     Active Substance: TRIAMCINOLONE ACETONIDE
  23. GABAPENTIN [Concomitant]
     Active Substance: GABAPENTIN
  24. ZITHROMAX [Concomitant]
     Active Substance: AZITHROMYCIN DIHYDRATE
  25. ZITHROMAX [Concomitant]
     Active Substance: AZITHROMYCIN DIHYDRATE
  26. ZITHROMAX [Concomitant]
     Active Substance: AZITHROMYCIN DIHYDRATE
  27. TESSALON [Concomitant]
     Active Substance: BENZONATATE
  28. TESSALON [Concomitant]
     Active Substance: BENZONATATE
  29. TESSALON [Concomitant]
     Active Substance: BENZONATATE
  30. CYANOCOBALAMIN [Concomitant]
     Active Substance: CYANOCOBALAMIN
  31. CYANOCOBALAMIN [Concomitant]
     Active Substance: CYANOCOBALAMIN
  32. DILTIAZEM [Concomitant]
     Active Substance: DILTIAZEM
  33. DILTIAZEM [Concomitant]
     Active Substance: DILTIAZEM
  34. DILTIAZEM [Concomitant]
     Active Substance: DILTIAZEM
  35. BENZONATATE [Concomitant]
     Active Substance: BENZONATATE
  36. BENZONATATE [Concomitant]
     Active Substance: BENZONATATE
  37. BENZONATATE [Concomitant]
     Active Substance: BENZONATATE
  38. NITROGLYCERIN [Concomitant]
     Active Substance: NITROGLYCERIN
  39. NITROGLYCERIN [Concomitant]
     Active Substance: NITROGLYCERIN
  40. NITROGLYCERIN [Concomitant]
     Active Substance: NITROGLYCERIN
  41. STIOLTO RESPIMAT [Concomitant]
     Active Substance: OLODATEROL HYDROCHLORIDE\TIOTROPIUM BROMIDE MONOHYDRATE
  42. STIOLTO RESPIMAT [Concomitant]
     Active Substance: OLODATEROL HYDROCHLORIDE\TIOTROPIUM BROMIDE MONOHYDRATE
  43. STIOLTO RESPIMAT [Concomitant]
     Active Substance: OLODATEROL HYDROCHLORIDE\TIOTROPIUM BROMIDE MONOHYDRATE
  44. SODIUM BICARBONATE [Concomitant]
     Active Substance: SODIUM BICARBONATE
  45. SODIUM BICARBONATE [Concomitant]
     Active Substance: SODIUM BICARBONATE
  46. SODIUM BICARBONATE [Concomitant]
     Active Substance: SODIUM BICARBONATE
  47. HORIZANT [Concomitant]
     Active Substance: GABAPENTIN ENACARBIL
  48. HORIZANT [Concomitant]
     Active Substance: GABAPENTIN ENACARBIL
  49. HORIZANT [Concomitant]
     Active Substance: GABAPENTIN ENACARBIL
  50. AZITHROMYCIN [Concomitant]
     Active Substance: AZITHROMYCIN
  51. AZITHROMYCIN [Concomitant]
     Active Substance: AZITHROMYCIN
  52. AZITHROMYCIN [Concomitant]
     Active Substance: AZITHROMYCIN
  53. GABAPENTIN [Concomitant]
     Active Substance: GABAPENTIN
  54. GABAPENTIN [Concomitant]
     Active Substance: GABAPENTIN
  55. GABAPENTIN [Concomitant]
     Active Substance: GABAPENTIN
  56. MEMANTINE [Concomitant]
     Active Substance: MEMANTINE
  57. MEMANTINE [Concomitant]
     Active Substance: MEMANTINE
  58. MEMANTINE [Concomitant]
     Active Substance: MEMANTINE
  59. ROSUVASTATIN CALCIUM [Concomitant]
     Active Substance: ROSUVASTATIN CALCIUM
  60. ROSUVASTATIN CALCIUM [Concomitant]
     Active Substance: ROSUVASTATIN CALCIUM
  61. ROSUVASTATIN CALCIUM [Concomitant]
     Active Substance: ROSUVASTATIN CALCIUM
  62. CARVEDILOL [Concomitant]
     Active Substance: CARVEDILOL
  63. CARVEDILOL [Concomitant]
     Active Substance: CARVEDILOL
  64. CARVEDILOL [Concomitant]
     Active Substance: CARVEDILOL
  65. OXYGEN [Concomitant]
     Active Substance: OXYGEN
  66. OXYGEN [Concomitant]
     Active Substance: OXYGEN
  67. OXYGEN [Concomitant]
     Active Substance: OXYGEN
  68. FLOVENT HFA [Concomitant]
     Active Substance: FLUTICASONE PROPIONATE
  69. FLOVENT HFA [Concomitant]
     Active Substance: FLUTICASONE PROPIONATE
  70. LEVOTHYROXINE SODIUM [Concomitant]
     Active Substance: LEVOTHYROXINE SODIUM
  71. LEVOTHYROXINE SODIUM [Concomitant]
     Active Substance: LEVOTHYROXINE SODIUM
  72. LEVOTHYROXINE SODIUM [Concomitant]
     Active Substance: LEVOTHYROXINE SODIUM
  73. ASPIRIN [Concomitant]
     Active Substance: ASPIRIN
  74. ASPIRIN [Concomitant]
     Active Substance: ASPIRIN
  75. VITAMINS [Concomitant]
     Active Substance: VITAMINS
  76. GABAPENTIN [Concomitant]
     Active Substance: GABAPENTIN
  77. AMLODIPINE BESYLATE [Concomitant]
     Active Substance: AMLODIPINE BESYLATE
  78. TOBRAMYCIN [Concomitant]
     Active Substance: TOBRAMYCIN
  79. OXYGEN [Concomitant]
     Active Substance: OXYGEN
  80. NEURONTIN [Concomitant]
     Active Substance: GABAPENTIN
  81. D1000 [Concomitant]
  82. PULMICORT TURBUHALER [Concomitant]
     Active Substance: BUDESONIDE
  83. BENZONATATE [Concomitant]
     Active Substance: BENZONATATE
  84. LOPRESSOR [Concomitant]
     Active Substance: METOPROLOL TARTRATE
  85. TRICOR [Concomitant]
     Active Substance: FENOFIBRATE

REACTIONS (7)
  - Prostate cancer [Unknown]
  - Dyspnoea [Unknown]
  - Cystic fibrosis [Unknown]
  - Condition aggravated [Unknown]
  - Cough [Unknown]
  - Flatulence [Unknown]
  - Abdominal discomfort [Unknown]
